FAERS Safety Report 5348687-3 (Version None)
Quarter: 2007Q2

REPORT INFORMATION
  Report Type: 
  Country: None (occurrence: None)
  Receive Date: 20070605
  Receipt Date: 20070524
  Transmission Date: 20071010
  Serious: Yes (Hospitalization)
  Sender: FDA-Public Use
  Company Number: 2007BI008699

PATIENT
  Age: 52 Year
  Sex: Male
  Weight: 111.1313 kg

DRUGS (11)
  1. AVONEX [Suspect]
     Indication: MULTIPLE SCLEROSIS
     Dosage: 30 UG;QW;IM
     Route: 030
     Dates: start: 20000101
  2. THERAGRAM [Concomitant]
  3. LASIX [Concomitant]
  4. COLACE [Concomitant]
  5. POTASSIUM ACETATE [Concomitant]
  6. SEROQUEL [Concomitant]
  7. REMERON [Concomitant]
  8. DESYREL [Concomitant]
  9. AUGMENTIN '125' [Concomitant]
  10. VITAMIN CAP [Concomitant]
  11. IRON [Concomitant]

REACTIONS (6)
  - LYMPHOEDEMA [None]
  - OEDEMA PERIPHERAL [None]
  - SKIN DISCOLOURATION [None]
  - SKIN ULCER [None]
  - STASIS DERMATITIS [None]
  - VENOUS STASIS [None]
